FAERS Safety Report 16850091 (Version 1)
Quarter: 2019Q3

REPORT INFORMATION
  Report Type: Spontaneous
  Country: AT (occurrence: AT)
  Receive Date: 20190925
  Receipt Date: 20190925
  Transmission Date: 20191005
  Serious: Yes (Other)
  Sender: FDA-Public Use
  Company Number: AT-AMGEN-AUTSP2019154488

PATIENT
  Sex: Male

DRUGS (5)
  1. PANITUMUMAB [Suspect]
     Active Substance: PANITUMUMAB
     Indication: RECTAL CANCER
     Dosage: UNK
     Route: 065
  2. FOLINIC ACID [CALCIUM FOLINATE] [Suspect]
     Active Substance: LEUCOVORIN CALCIUM
     Indication: RECTAL CANCER
     Dosage: UNK
     Route: 065
  3. OXALIPLATIN. [Suspect]
     Active Substance: OXALIPLATIN
     Indication: RECTAL CANCER
     Dosage: UNK
     Route: 065
  4. IRINOTECAN [Suspect]
     Active Substance: IRINOTECAN
     Indication: RECTAL CANCER
     Dosage: UNK
     Route: 065
  5. 5-FU [FLUOROURACIL] [Suspect]
     Active Substance: FLUOROURACIL
     Indication: RECTAL CANCER
     Dosage: UNK
     Route: 065

REACTIONS (11)
  - Colitis [Unknown]
  - Pleural effusion [Unknown]
  - BRAF V600E mutation positive [Unknown]
  - Pulmonary mass [Unknown]
  - Hydronephrosis [Unknown]
  - Hepatic cyst [Unknown]
  - Malignant neoplasm progression [Unknown]
  - Rectal cancer [Unknown]
  - Lymphadenopathy [Unknown]
  - Rectal cancer stage II [Unknown]
  - Intestinal metastasis [Unknown]

NARRATIVE: CASE EVENT DATE: 201807
